FAERS Safety Report 5320608-9 (Version None)
Quarter: 2007Q2

REPORT INFORMATION
  Report Type: 
  Country: None (occurrence: None)
  Receive Date: 20070509
  Receipt Date: 20070430
  Transmission Date: 20071010
  Serious: Yes (Other)
  Sender: FDA-Public Use
  Company Number: AU-PFIZER INC-2007035749

PATIENT
  Sex: Male

DRUGS (4)
  1. LIPITOR [Suspect]
  2. SPIRIVA [Concomitant]
  3. VENTOLIN [Concomitant]
  4. FLUTICASONE PROPIONATE [Concomitant]

REACTIONS (3)
  - AMNESIA [None]
  - MUSCLE ATROPHY [None]
  - PAIN IN EXTREMITY [None]
